FAERS Safety Report 6333128-X (Version None)
Quarter: 2009Q3

REPORT INFORMATION
  Report Type: 
  Country: None (occurrence: None)
  Receive Date: 20090828
  Receipt Date: 20090821
  Transmission Date: 20100115
  Serious: Yes (Other)
  Sender: FDA-Public Use
  Company Number: US-JNJFOC-20090807323

PATIENT
  Sex: Female
  Weight: 61.24 kg

DRUGS (10)
  1. REMICADE [Suspect]
     Indication: RHEUMATOID ARTHRITIS
     Route: 042
  2. HYDROCODONE [Concomitant]
     Indication: PAIN
     Dosage: 7.5-750 MG
  3. LEFLUNOMIDE [Concomitant]
  4. AZATHIOPRINE [Concomitant]
  5. AMITRIPTYLINE [Concomitant]
  6. LISINOPRIL AND HYDROCHLOROTHIAZIDE [Concomitant]
     Dosage: 20-12.5 TABLETS
  7. OXYBUTYNIN [Concomitant]
  8. SULFASALAZINE [Concomitant]
  9. OYSTER SHELL [Concomitant]
  10. ASPIRIN [Concomitant]

REACTIONS (3)
  - JOINT ARTHROPLASTY [None]
  - STOMATITIS [None]
  - URTICARIA [None]
